FAERS Safety Report 10366074 (Version 1)
Quarter: 2014Q1

REPORT INFORMATION
  Report Type: Spontaneous
  Country: US (occurrence: None)
  Receive Date: 20140306
  Receipt Date: 20140306
  Transmission Date: 20141002
  Serious: Yes (Hospitalization)
  Sender: FDA-Public Use
  Company Number: 163-21880-13030170

PATIENT
  Sex: Male
  Weight: 96.1 kg

DRUGS (3)
  1. REVLIMID [Suspect]
     Indication: PLASMA CELL MYELOMA RECURRENT
     Dosage: 25 MG, 21 IN 28 D, PO
     Route: 048
     Dates: start: 20130102, end: 20130219
  2. MLN 9708/PLACEBO [Suspect]
     Indication: PLASMA CELL MYELOMA RECURRENT
     Dosage: 4 MG, DAYS 1, 8, 15 Q 28 DAYS, PO
     Route: 048
     Dates: start: 20130102, end: 20130213
  3. DEXAMETHASONE [Suspect]
     Indication: PLASMA CELL MYELOMA RECURRENT
     Dosage: 40 MG, DAYS 1, 8, 15, Q 28DAYS, PO
     Route: 048
     Dates: start: 20130102, end: 20130220

REACTIONS (3)
  - Confusional state [None]
  - Dehydration [None]
  - Renal failure [None]
